FAERS Safety Report 5135627-5 (Version None)
Quarter: 2006Q4

REPORT INFORMATION
  Report Type: 
  Country: None (occurrence: None)
  Receive Date: 20061026
  Receipt Date: 20061013
  Transmission Date: 20070319
  Serious: Yes (Other)
  Sender: FDA-Public Use
  Company Number: PHRM2006FR02840

PATIENT
  Age: 75 Year
  Sex: Female

DRUGS (4)
  1. TAREG [Suspect]
     Indication: MYOCARDIAL INFARCTION
     Dosage: 80 MG, QD
     Route: 048
     Dates: start: 20061001
  2. ASPEGIC 1000 [Concomitant]
  3. CORVASAL [Concomitant]
  4. TAHOR [Concomitant]

REACTIONS (1)
  - ERYTHEMA MULTIFORME [None]
